FAERS Safety Report 6820622-8 (Version None)
Quarter: 2010Q3

REPORT INFORMATION
  Report Type: 
  Country: None (occurrence: None)
  Receive Date: 20100707
  Receipt Date: 20100603
  Transmission Date: 20110219
  Serious: Yes (Hospitalization)
  Sender: FDA-Public Use
  Company Number: US-BIOGENIDEC-2010BI007485

PATIENT
  Age: 39 Year
  Sex: Female

DRUGS (6)
  1. TYSABRI [Suspect]
     Indication: MULTIPLE SCLEROSIS
     Route: 042
     Dates: start: 20070802, end: 20100112
  2. LORAZEPAM [Concomitant]
     Indication: DEPRESSION
  3. LORAZEPAM [Concomitant]
     Indication: ANXIETY
  4. TRAZODONE HYDROCHLORIDE [Concomitant]
     Indication: DEPRESSION
  5. TRAZODONE HYDROCHLORIDE [Concomitant]
     Indication: ANXIETY
  6. DEPAKOTE [Concomitant]
     Indication: BIPOLAR DISORDER
     Dates: start: 20100101, end: 20100201

REACTIONS (5)
  - CONGESTIVE CARDIOMYOPATHY [None]
  - DRUG HYPERSENSITIVITY [None]
  - HAEMOLYSIS [None]
  - HEPATITIS [None]
  - VIRAL INFECTION [None]
